FAERS Safety Report 9511025 (Version 1)
Quarter: 2013Q3

REPORT INFORMATION
  Report Type: Spontaneous
  Country: US (occurrence: None)
  Receive Date: 20130909
  Receipt Date: 20130909
  Transmission Date: 20140515
  Serious: No
  Sender: FDA-Public Use
  Company Number: None

PATIENT
  Sex: Female

DRUGS (1)
  1. HUMIRA 40 MG ABBVIE [Suspect]
     Indication: PSORIATIC ARTHROPATHY
     Dosage: 40 MG  QOW  SQ
     Route: 058
     Dates: start: 20100122

REACTIONS (3)
  - Skin disorder [None]
  - Erythema [None]
  - Pain [None]
